FAERS Safety Report 25040627 (Version 2)
Quarter: 2025Q3

REPORT INFORMATION
  Report Type: Report from Study
  Country: US (occurrence: US)
  Receive Date: 20250305
  Receipt Date: 20250809
  Transmission Date: 20251020
  Serious: Yes (Other)
  Sender: ALEXION PHARMACEUTICALS
  Company Number: US-AstraZeneca-CH-00818367A

PATIENT
  Sex: Female

DRUGS (2)
  1. TEZEPELUMAB [Suspect]
     Active Substance: TEZEPELUMAB
     Route: 065
     Dates: start: 20250129, end: 20250226
  2. TEZEPELUMAB [Suspect]
     Active Substance: TEZEPELUMAB

REACTIONS (3)
  - Bronchiolitis [Unknown]
  - Asthma [Unknown]
  - Cough [Unknown]

NARRATIVE: CASE EVENT DATE: 20250129
